FAERS Safety Report 9258487 (Version 1)
Quarter: 2013Q2

REPORT INFORMATION
  Report Type: Spontaneous
  Country: US (occurrence: US)
  Receive Date: 20130426
  Receipt Date: 20130426
  Transmission Date: 20140414
  Serious: No
  Sender: FDA-Public Use
  Company Number: US-PFIZER INC-2013124151

PATIENT
  Sex: Female

DRUGS (2)
  1. ALPRAZOLAM [Suspect]
     Dosage: UNK
  2. ALPRAZOLAM [Suspect]
     Dosage: UNK

REACTIONS (6)
  - Skin burning sensation [Unknown]
  - Reaction to drug excipients [Unknown]
  - Abdominal discomfort [Unknown]
  - Dyspepsia [Unknown]
  - Pain in extremity [Unknown]
  - Feeling abnormal [Unknown]
